FAERS Safety Report 4884576-6 (Version None)
Quarter: 2006Q1

REPORT INFORMATION
  Report Type: 
  Country: None (occurrence: None)
  Receive Date: 20060119
  Receipt Date: 20060118
  Transmission Date: 20060701
  Serious: Yes (Death)
  Sender: FDA-Public Use
  Company Number: AU-BRISTOL-MYERS SQUIBB COMPANY-13250667

PATIENT
  Age: 57 Year
  Sex: Male
  Weight: 91 kg

DRUGS (5)
  1. LITALIR [Suspect]
     Indication: GLIOBLASTOMA
     Route: 048
     Dates: start: 20050914, end: 20060107
  2. LASIX [Concomitant]
  3. DEXAMETHASONE TAB [Concomitant]
  4. AROPAX [Concomitant]
  5. OMEPRAZOLE [Concomitant]

REACTIONS (1)
  - SUDDEN DEATH [None]
